FAERS Safety Report 14852883 (Version 3)
Quarter: 2018Q2

REPORT INFORMATION
  Report Type: Spontaneous
  Country: CZ (occurrence: CZ)
  Receive Date: 20180507
  Receipt Date: 20180615
  Transmission Date: 20180711
  Serious: Yes (Other)
  Sender: FDA-Public Use
  Company Number: CZ-ABBVIE-18K-217-2346380-00

PATIENT
  Age: 22 Year
  Sex: Female
  Weight: 47 kg

DRUGS (6)
  1. MALTOFER [Concomitant]
     Active Substance: IRON POLYMALTOSE
     Indication: CROHN^S DISEASE
     Dosage: 1-0-0
     Route: 048
  2. ADALIMUMAB [Suspect]
     Active Substance: ADALIMUMAB
     Indication: CROHN^S DISEASE
     Route: 058
     Dates: start: 201603, end: 201702
  3. PENTASA [Concomitant]
     Active Substance: MESALAMINE
     Indication: CROHN^S DISEASE
     Dosage: 1-0-1
     Route: 048
  4. CALCICHEW [Concomitant]
     Active Substance: CALCIUM CARBONATE
     Indication: CROHN^S DISEASE
     Dosage: 400, 1-0-0
     Route: 048
  5. IMURAN [Concomitant]
     Active Substance: AZATHIOPRINE
     Indication: CROHN^S DISEASE
     Dosage: 2-0-0
     Route: 048
  6. MALTOFER [Concomitant]
     Active Substance: IRON POLYMALTOSE
     Indication: ANAEMIA

REACTIONS (7)
  - Drug dependence [Unknown]
  - Pustular psoriasis [Recovered/Resolved]
  - Infection [Unknown]
  - Immune system disorder [Recovered/Resolved]
  - Diarrhoea [Unknown]
  - Abdominal pain upper [Unknown]
  - Alopecia [Recovered/Resolved]

NARRATIVE: CASE EVENT DATE: 201606
